FAERS Safety Report 10269065 (Version 1)
Quarter: 2014Q2

REPORT INFORMATION
  Report Type: Spontaneous
  Country: GB (occurrence: GB)
  Receive Date: 20140630
  Receipt Date: 20140630
  Transmission Date: 20141212
  Serious: Yes (Other)
  Sender: FDA-Public Use
  Company Number: PHHY2014GB077407

PATIENT
  Age: 72 Year
  Sex: Female
  Weight: 77 kg

DRUGS (15)
  1. RANITIDINE [Suspect]
     Route: 048
     Dates: start: 20140610, end: 20140611
  2. BECONASE [Concomitant]
     Dates: start: 20140520
  3. BISOPROLOL [Concomitant]
     Dates: start: 20140317
  4. CHLORAMPHENICOL [Concomitant]
     Dates: start: 20140410, end: 20140411
  5. CLOPIDOGREL [Concomitant]
     Dates: start: 20140317
  6. CO-CODAMOL [Concomitant]
     Dates: start: 20140507, end: 20140519
  7. ESTRADIOL [Concomitant]
     Dates: start: 20140410
  8. FENBID [Concomitant]
     Dates: start: 20140317, end: 20140331
  9. GABAPENTIN [Concomitant]
     Dates: start: 20140507, end: 20140606
  10. LIDOCAINE [Concomitant]
     Dates: start: 20140403, end: 20140404
  11. NASEPTIN [Concomitant]
     Dates: start: 20140325, end: 20140408
  12. ROSUVASTATIN [Concomitant]
     Dates: start: 20140410
  13. SYSTANE [Concomitant]
     Dates: start: 20140606
  14. SYSTANE [Concomitant]
     Dates: start: 20140317, end: 20140414
  15. TIMODINE [Concomitant]
     Dates: start: 20140325, end: 20140401

REACTIONS (2)
  - Dyspepsia [Recovered/Resolved]
  - Chest discomfort [Recovered/Resolved]
